FAERS Safety Report 7525574-3 (Version None)
Quarter: 2011Q2

REPORT INFORMATION
  Report Type: 
  Country: None (occurrence: None)
  Receive Date: 20110606
  Receipt Date: 20110523
  Transmission Date: 20111010
  Serious: Yes (Other)
  Sender: FDA-Public Use
  Company Number: PHHY2011MX45137

PATIENT
  Sex: Female

DRUGS (1)
  1. RASILEZ [Suspect]
     Indication: HYPERTENSION
     Dosage: 150 MG PER DAY, UNK
     Dates: start: 20110101, end: 20110518

REACTIONS (3)
  - INFARCTION [None]
  - BLOOD PRESSURE INCREASED [None]
  - BLOOD GLUCOSE DECREASED [None]
